FAERS Safety Report 4655131-8 (Version None)
Quarter: 2005Q2

REPORT INFORMATION
  Report Type: 
  Country: None (occurrence: None)
  Receive Date: 20050506
  Receipt Date: 20050426
  Transmission Date: 20051028
  Serious: Yes (Death, Hospitalization)
  Sender: FDA-Public Use
  Company Number: US-BRISTOL-MYERS SQUIBB COMPANY-12947354

PATIENT
  Age: 84 Year
  Sex: Female

DRUGS (11)
  1. COUMADIN [Suspect]
     Indication: CEREBROVASCULAR ACCIDENT
     Dosage: MANY YEARS
     Route: 048
  2. PRAVACHOL [Suspect]
     Route: 048
  3. POTASSIUM CHLORIDE [Concomitant]
  4. LASIX [Concomitant]
  5. SYNTHROID [Concomitant]
  6. PREDNISONE TAB [Concomitant]
  7. ZOLOFT [Concomitant]
  8. COREG [Concomitant]
  9. AMIODARONE HCL [Concomitant]
  10. FOSAMAX [Concomitant]
  11. CELEBREX [Concomitant]

REACTIONS (2)
  - DEATH [None]
  - PERSONALITY CHANGE [None]
